FAERS Safety Report 8190292-8 (Version None)
Quarter: 2012Q1

REPORT INFORMATION
  Report Type: 
  Country: None (occurrence: None)
  Receive Date: 20120307
  Receipt Date: 20120301
  Transmission Date: 20120608
  Serious: Yes (Death)
  Sender: FDA-Public Use
  Company Number: BR-ELI_LILLY_AND_COMPANY-BR201203000603

PATIENT
  Age: 77 Year
  Sex: Male

DRUGS (2)
  1. ALIMTA [Suspect]
     Dosage: 550 MG, UNKNOWN
     Route: 065
  2. CISPLATINA [Concomitant]
     Dosage: 75 MG, UNKNOWN
     Route: 065

REACTIONS (1)
  - DEATH [None]
